FAERS Safety Report 8575607 (Version 4)
Quarter: 2013Q1

REPORT INFORMATION
  Report Type: Spontaneous
  Country: US (occurrence: US)
  Receive Date: 20120523
  Receipt Date: 20130305
  Transmission Date: 20140127
  Serious: Yes (Other)
  Sender: FDA-Public Use
  Company Number: US-BAYER-2012-048980

PATIENT
  Age: 34 Year
  Sex: Female
  Weight: 89.8 kg

DRUGS (2)
  1. MIRENA [Suspect]
     Indication: CONTRACEPTION
     Dosage: 20 MCG/24HR, CONT
     Route: 015
     Dates: start: 20070730, end: 20120730
  2. GLIPIZIDE [Concomitant]
     Indication: TYPE 2 DIABETES MELLITUS

REACTIONS (9)
  - Device dislocation [None]
  - Pregnancy with contraceptive device [None]
  - Nausea [None]
  - Dizziness [None]
  - Device difficult to use [None]
  - Device dislocation [None]
  - Vaginal haemorrhage [None]
  - Premature delivery [None]
  - Drug ineffective [None]
